FAERS Safety Report 5852984-2 (Version None)
Quarter: 2008Q3

REPORT INFORMATION
  Report Type: 
  Country: None (occurrence: None)
  Receive Date: 20080821
  Receipt Date: 20050410
  Transmission Date: 20090109
  Serious: Yes (Other)
  Sender: FDA-Public Use
  Company Number: IT-ROCHE-571953

PATIENT
  Sex: Female
  Weight: 75 kg

DRUGS (2)
  1. PEGASYS [Suspect]
     Route: 065
     Dates: start: 20040312, end: 20040830
  2. REBETOL [Suspect]
     Route: 065
     Dates: start: 20040312, end: 20040830

REACTIONS (1)
  - AUTOIMMUNE HEPATITIS [None]
